FAERS Safety Report 14519937 (Version 2)
Quarter: 2021Q3

REPORT INFORMATION
  Report Type: Report from Study
  Country: US (occurrence: US)
  Receive Date: 20180212
  Receipt Date: 20210929
  Transmission Date: 20211014
  Serious: Yes (Other)
  Sender: FDA-Public Use
  Company Number: US-PFIZER INC-2018046485

PATIENT

DRUGS (9)
  1. DOXORUBICIN HCL [Suspect]
     Active Substance: DOXORUBICIN HYDROCHLORIDE
     Indication: DIFFUSE LARGE B-CELL LYMPHOMA
     Dosage: UNK, CYCLIC (SIX 21?DAY CYCLES)
  2. RITUXIMAB. [Suspect]
     Active Substance: RITUXIMAB
     Indication: DIFFUSE LARGE B-CELL LYMPHOMA
     Dosage: UNK, CYCLIC (SIX 21?DAY CYCLES)
  3. CYCLOPHOSPHAMIDE. [Suspect]
     Active Substance: CYCLOPHOSPHAMIDE
     Indication: DIFFUSE LARGE B-CELL LYMPHOMA
     Dosage: UNK, CYCLIC (SIX 21?DAY CYCLES)
  4. AZACITIDINE. [Suspect]
     Active Substance: AZACITIDINE
     Dosage: 300 MG,  DAILY FOR 14 DAYS (DAYS 8?21) DURING CYCLES 1?5 OF R?CHOP
     Route: 048
  5. PEGFILGRASTIM [Concomitant]
     Active Substance: PEGFILGRASTIM
  6. G?CSF [Concomitant]
     Active Substance: GRANULOCYTE COLONY-STIMULATING FACTOR NOS
     Dosage: UNK
  7. VINCRISTINE SULFATE. [Suspect]
     Active Substance: VINCRISTINE SULFATE
     Indication: DIFFUSE LARGE B-CELL LYMPHOMA
     Dosage: UNK, CYCLIC (SIX 21?DAY CYCLES)
  8. PREDNISONE. [Suspect]
     Active Substance: PREDNISONE
     Indication: DIFFUSE LARGE B-CELL LYMPHOMA
     Dosage: UNK , CYCLIC (SIX 21?DAY CYCLES)
  9. AZACITIDINE. [Suspect]
     Active Substance: AZACITIDINE
     Indication: DIFFUSE LARGE B-CELL LYMPHOMA
     Dosage: 300 MG, DAILY AS A 7?DAY PRIMING REGIMEN BEFORE INITIATION OF R?CHOP ON DAY 1 OF CYCLE 1
     Route: 048

REACTIONS (1)
  - Neutropenia [Unknown]
